FAERS Safety Report 20585097 (Version 1)
Quarter: 2022Q1

REPORT INFORMATION
  Report Type: Report from Study
  Country: US (occurrence: US)
  Receive Date: 20220311
  Receipt Date: 20220311
  Transmission Date: 20220424
  Serious: Yes (Hospitalization, Other)
  Sender: FDA-Public Use
  Company Number: US-UCBSA-2022003037

PATIENT
  Age: 70 Year
  Sex: Male
  Weight: 90.71 kg

DRUGS (2)
  1. LACOSAMIDE [Suspect]
     Active Substance: LACOSAMIDE
     Indication: Seizure
     Dosage: 100 MILLIGRAM, 2X/DAY (BID)
     Dates: start: 2019
  2. COVID-19 VACCINE [Concomitant]
     Indication: Immunisation

REACTIONS (3)
  - Subdural haematoma [Not Recovered/Not Resolved]
  - Seizure [Unknown]
  - COVID-19 immunisation [Unknown]

NARRATIVE: CASE EVENT DATE: 20190401
